FAERS Safety Report 15952486 (Version 1)
Quarter: 2019Q1

REPORT INFORMATION
  Report Type: Spontaneous
  Country: SE (occurrence: SE)
  Receive Date: 20190211
  Receipt Date: 20190211
  Transmission Date: 20190417
  Serious: Yes (Hospitalization)
  Sender: FDA-Public Use
  Company Number: SE-TEVA-2019-SE-1009339

PATIENT
  Sex: Female

DRUGS (3)
  1. COCILLANA-ETYFIN [Suspect]
     Active Substance: ETHYLMORPHINE HYDROCHLORIDE\HERBALS
     Dates: start: 20180122, end: 20180122
  2. POTASSIUM CHLORIDE. [Suspect]
     Active Substance: POTASSIUM CHLORIDE
     Dosage: 20-30 TABLETTER
     Route: 048
     Dates: start: 20180122, end: 20180122
  3. LOSARTAN/HYDROKLORTIAZID [Suspect]
     Active Substance: HYDROCHLOROTHIAZIDE\LOSARTAN
     Dates: start: 20180122, end: 20180122

REACTIONS (2)
  - Intentional self-injury [Unknown]
  - Intentional overdose [Unknown]

NARRATIVE: CASE EVENT DATE: 20180122
